FAERS Safety Report 25431818 (Version 1)
Quarter: 2025Q2

REPORT INFORMATION
  Report Type: Spontaneous
  Country: GB (occurrence: GB)
  Receive Date: 20250613
  Receipt Date: 20250613
  Transmission Date: 20250717
  Serious: Yes (Disabling)
  Sender: CELLTRION
  Company Number: GB-CELLTRION INC.-2025GB018161

PATIENT

DRUGS (1)
  1. INFLIXIMAB [Suspect]
     Active Substance: INFLIXIMAB
     Indication: Colitis ulcerative
     Dosage: 120MG/1ML SOLUTION FOR INJECTION PRE-FILLED PENS - INJECT ONE PRE-FILLED PEN EVERY TWO WEEKS
     Route: 058
     Dates: start: 202302

REACTIONS (2)
  - Lymphoedema [Not Recovered/Not Resolved]
  - Back pain [Not Recovered/Not Resolved]
